FAERS Safety Report 25379859 (Version 1)
Quarter: 2025Q2

REPORT INFORMATION
  Report Type: Spontaneous
  Country: CA (occurrence: CA)
  Receive Date: 20250530
  Receipt Date: 20250530
  Transmission Date: 20250717
  Serious: Yes (Hospitalization, Other)
  Sender: APELLIS PHARMACEUTICALS
  Company Number: CA-BIOVITRUM-2024-CA-012912

PATIENT

DRUGS (2)
  1. EMPAVELI [Suspect]
     Active Substance: PEGCETACOPLAN
     Indication: Paroxysmal nocturnal haemoglobinuria
     Route: 058
     Dates: start: 20230901
  2. EMPAVELI [Suspect]
     Active Substance: PEGCETACOPLAN
     Route: 058
     Dates: start: 20241006

REACTIONS (4)
  - Breakthrough haemolysis [Recovering/Resolving]
  - Viral infection [Recovering/Resolving]
  - Off label use [Recovered/Resolved]
  - Ear infection [Unknown]

NARRATIVE: CASE EVENT DATE: 20241004
